FAERS Safety Report 16722494 (Version 2)
Quarter: 2020Q3

REPORT INFORMATION
  Report Type: Spontaneous
  Country: CA (occurrence: CA)
  Receive Date: 20190820
  Receipt Date: 20200915
  Transmission Date: 20201102
  Serious: Yes (Hospitalization, Other)
  Sender: FDA-Public Use
  Company Number: PHHY2019CA191985

PATIENT
  Age: 57 Year
  Sex: Female
  Weight: 66 kg

DRUGS (15)
  1. CIPROFLOXACIN HYDROCHLORIDE. [Suspect]
     Active Substance: CIPROFLOXACIN HYDROCHLORIDE
     Indication: PRODUCT USED FOR UNKNOWN INDICATION
     Dosage: 500 MG, BID
     Route: 048
     Dates: start: 201903
  2. NYSTATIN. [Suspect]
     Active Substance: NYSTATIN
     Indication: PRODUCT USED FOR UNKNOWN INDICATION
     Dosage: 5 ML, BID (FOR 2 WEEKS)
     Route: 048
  3. FOLIC ACID. [Suspect]
     Active Substance: FOLIC ACID
     Dosage: UNK
     Route: 065
     Dates: start: 20200810
  4. FOLIC ACID. [Suspect]
     Active Substance: FOLIC ACID
     Dosage: UNK
     Route: 065
  5. VITAMIN B12 [Suspect]
     Active Substance: CYANOCOBALAMIN
     Indication: PRODUCT USED FOR UNKNOWN INDICATION
     Dosage: UNK
     Route: 065
  6. FOLIC ACID. [Suspect]
     Active Substance: FOLIC ACID
     Indication: PRODUCT USED FOR UNKNOWN INDICATION
     Dosage: UNK UNK, QW(5 TO 6 TIMES WEEKLY, SATURDAY)
     Route: 065
     Dates: start: 201907
  7. OXYCODONE HYDROCHLORIDE. [Suspect]
     Active Substance: OXYCODONE HYDROCHLORIDE
     Indication: PAIN
     Dosage: 2 DF, PRN
     Route: 048
  8. APO?METHOTREXATE [Suspect]
     Active Substance: METHOTREXATE
     Indication: PRODUCT USED FOR UNKNOWN INDICATION
     Dosage: 1 DF, QW (8 TABLETS ONCE A WEEK FOR 3 MONTHS)
     Route: 048
     Dates: start: 201907
  9. FLORASTOR [Concomitant]
     Active Substance: SACCHAROMYCES CEREVISIAE
     Indication: PRODUCT USED FOR UNKNOWN INDICATION
     Dosage: UNK
     Route: 065
  10. FLAGYL [Suspect]
     Active Substance: METRONIDAZOLE\METRONIDAZOLE HYDROCHLORIDE
     Indication: PRODUCT USED FOR UNKNOWN INDICATION
     Dosage: 500 MG, BID
     Route: 048
     Dates: start: 201903
  11. INFLECTRA [Suspect]
     Active Substance: INFLIXIMAB-DYYB
     Indication: CROHN^S DISEASE
     Dosage: UNK
     Route: 042
     Dates: start: 20190807
  12. PEPPERMINT OIL [Concomitant]
     Active Substance: PEPPERMINT OIL
     Indication: PRODUCT USED FOR UNKNOWN INDICATION
     Dosage: UNK
     Route: 065
  13. DIPHENHYDRAMINE. [Concomitant]
     Active Substance: DIPHENHYDRAMINE
     Indication: PRODUCT USED FOR UNKNOWN INDICATION
     Dosage: UNK
     Route: 065
  14. DILAUDID [Concomitant]
     Active Substance: HYDROMORPHONE HYDROCHLORIDE
     Indication: PRODUCT USED FOR UNKNOWN INDICATION
     Dosage: UNK
     Route: 065
  15. HYDROCORTISONE. [Concomitant]
     Active Substance: HYDROCORTISONE
     Indication: PRODUCT USED FOR UNKNOWN INDICATION
     Dosage: UNK
     Route: 065

REACTIONS (79)
  - Frequent bowel movements [Not Recovered/Not Resolved]
  - Post procedural haemorrhage [Unknown]
  - Inflammatory bowel disease [Unknown]
  - Accessory spleen [Unknown]
  - Anxiety [Unknown]
  - Vitamin D decreased [Unknown]
  - Blood triglycerides increased [Unknown]
  - White blood cell disorder [Unknown]
  - Haematocrit increased [Unknown]
  - Abdominal discomfort [Unknown]
  - Back pain [Unknown]
  - Vulval abscess [Recovering/Resolving]
  - Skin ulcer [Unknown]
  - Female genital tract fistula [Unknown]
  - Stress [Unknown]
  - Incontinence [Unknown]
  - Drug level above therapeutic [Unknown]
  - Dyspepsia [Unknown]
  - Inappropriate schedule of product administration [Unknown]
  - Respiratory tract congestion [Unknown]
  - Pneumonia [Unknown]
  - Hydronephrosis [Unknown]
  - Anorectal discomfort [Unknown]
  - Vulvovaginal pain [Unknown]
  - Oropharyngeal pain [Unknown]
  - Infusion site streaking [Unknown]
  - Sinusitis [Unknown]
  - Fear of injection [Unknown]
  - Condition aggravated [Unknown]
  - Haemoglobin increased [Unknown]
  - Lower respiratory tract infection [Unknown]
  - SARS-CoV-2 test positive [Unknown]
  - Discomfort [Unknown]
  - Proctalgia [Unknown]
  - Anal fistula [Unknown]
  - Feeling abnormal [Unknown]
  - Abdominal pain [Unknown]
  - Malaise [Unknown]
  - Alanine aminotransferase increased [Unknown]
  - Large intestinal ulcer [Unknown]
  - Vaginal discharge [Unknown]
  - Colitis [Unknown]
  - C-reactive protein increased [Unknown]
  - Cough [Unknown]
  - Injury [Unknown]
  - Paraesthesia [Unknown]
  - Alopecia [Unknown]
  - Nerve compression [Unknown]
  - Flatulence [Unknown]
  - Nephrolithiasis [Unknown]
  - Procedural pain [Unknown]
  - Aphthous ulcer [Unknown]
  - Pain [Unknown]
  - Perineal pain [Unknown]
  - Hepatic cyst [Unknown]
  - Procedural anxiety [Unknown]
  - Anorectal discomfort [Unknown]
  - Red blood cell sedimentation rate increased [Unknown]
  - Burning sensation [Unknown]
  - Vaginal infection [Unknown]
  - Rectal ulcer [Unknown]
  - Nausea [Unknown]
  - Intentional product use issue [Unknown]
  - Headache [Unknown]
  - Pharyngitis [Unknown]
  - Diverticulum [Unknown]
  - Heart rate decreased [Unknown]
  - Blood pressure systolic increased [Unknown]
  - Productive cough [Unknown]
  - Drug ineffective [Unknown]
  - Rectal haemorrhage [Unknown]
  - Weight decreased [Unknown]
  - Illness [Unknown]
  - Urinary tract infection [Unknown]
  - Nasopharyngitis [Unknown]
  - Cystic fibrosis [Unknown]
  - Blood cholesterol increased [Unknown]
  - Haemorrhoids [Unknown]
  - Vaginal haemorrhage [Unknown]

NARRATIVE: CASE EVENT DATE: 201903
